FAERS Safety Report 5933676-8 (Version None)
Quarter: 2008Q4

REPORT INFORMATION
  Report Type: 
  Country: None (occurrence: None)
  Receive Date: 20081029
  Receipt Date: 20081021
  Transmission Date: 20090506
  Serious: Yes (Other)
  Sender: FDA-Public Use
  Company Number: US-CELGENEUS-163-20785-08071332

PATIENT
  Sex: Male

DRUGS (3)
  1. THALOMID [Suspect]
     Indication: MULTIPLE MYELOMA
     Route: 048
     Dates: start: 20060105, end: 20080601
  2. THALOMID [Suspect]
     Route: 048
     Dates: start: 20020830
  3. THALOMID [Suspect]
     Route: 048
     Dates: start: 20051122, end: 20060101

REACTIONS (1)
  - BLOOD CREATININE INCREASED [None]
